FAERS Safety Report 9905516 (Version 2)
Quarter: 2014Q1

REPORT INFORMATION
  Report Type: Spontaneous
  Country: US (occurrence: US)
  Receive Date: 20140218
  Receipt Date: 20140220
  Transmission Date: 20141002
  Serious: Yes (Other)
  Sender: FDA-Public Use
  Company Number: US-GLAXOSMITHKLINE-A1061239A

PATIENT
  Sex: 0

DRUGS (1)
  1. ADVAIR [Suspect]
     Indication: EMPHYSEMA
     Dates: start: 2012

REACTIONS (19)
  - Oxygen supplementation [Recovered/Resolved]
  - Traumatic lung injury [Unknown]
  - Eczema [Recovering/Resolving]
  - Urticaria [Unknown]
  - Dyspnoea [Recovering/Resolving]
  - General physical health deterioration [Recovering/Resolving]
  - Hypersensitivity [Recovering/Resolving]
  - Skin disorder [Recovering/Resolving]
  - Skin ulcer [Unknown]
  - Pruritus [Not Recovered/Not Resolved]
  - Scratch [Unknown]
  - Alopecia [Recovering/Resolving]
  - Total lung capacity decreased [Recovering/Resolving]
  - Wheezing [Unknown]
  - Cough [Unknown]
  - Productive cough [Unknown]
  - Local swelling [Recovering/Resolving]
  - Laceration [Unknown]
  - Oxygen saturation decreased [Recovering/Resolving]
